FAERS Safety Report 8041977-5 (Version None)
Quarter: 2012Q1

REPORT INFORMATION
  Report Type: 
  Country: None (occurrence: None)
  Receive Date: 20120112
  Receipt Date: 20120106
  Transmission Date: 20120608
  Serious: Yes (Life-Threatening, Other)
  Sender: FDA-Public Use
  Company Number: PHHY2011US12402

PATIENT
  Sex: Female
  Weight: 63.503 kg

DRUGS (5)
  1. ANTIHYPERTENSIVE DRUGS [Suspect]
  2. DIOVAN HCT [Suspect]
     Dosage: 1 DF(80/12.5 MG), UNK
     Route: 048
     Dates: start: 20101201
  3. DIOVAN HCT [Suspect]
     Dosage: 1 DF (160/25 MG), QD
     Dates: start: 20110101
  4. DIOVAN HCT [Suspect]
     Dosage: 1 DF (160/25 MG), UNK
     Route: 048
  5. TOPROL-XL [Suspect]

REACTIONS (24)
  - MALAISE [None]
  - ABASIA [None]
  - ALOPECIA [None]
  - INSOMNIA [None]
  - VISION BLURRED [None]
  - FEELING ABNORMAL [None]
  - EYELID OEDEMA [None]
  - HYPERTENSION [None]
  - DYSPNOEA [None]
  - FATIGUE [None]
  - ERYTHEMA [None]
  - RASH [None]
  - EAR INFECTION [None]
  - PERIPHERAL COLDNESS [None]
  - HYPOAESTHESIA [None]
  - VERTIGO [None]
  - DRY MOUTH [None]
  - COUGH [None]
  - HEADACHE [None]
  - CONTUSION [None]
  - STRESS [None]
  - PARAESTHESIA [None]
  - VOMITING [None]
  - NASOPHARYNGITIS [None]
